FAERS Safety Report 20114071 (Version 4)
Quarter: 2025Q1

REPORT INFORMATION
  Report Type: Report from Study
  Country: CA (occurrence: CA)
  Receive Date: 20211125
  Receipt Date: 20250304
  Transmission Date: 20250409
  Serious: Yes (Hospitalization, Other)
  Sender: TAKEDA
  Company Number: CA-TAKEDA-2021TUS074329

PATIENT
  Sex: Female

DRUGS (5)
  1. VEDOLIZUMAB [Suspect]
     Active Substance: VEDOLIZUMAB
     Indication: Crohn^s disease
  2. VEDOLIZUMAB [Suspect]
     Active Substance: VEDOLIZUMAB
  3. VEDOLIZUMAB [Suspect]
     Active Substance: VEDOLIZUMAB
  4. VEDOLIZUMAB [Suspect]
     Active Substance: VEDOLIZUMAB
  5. BUDESONIDE [Concomitant]
     Active Substance: BUDESONIDE

REACTIONS (4)
  - Crohn^s disease [Not Recovered/Not Resolved]
  - Gastrointestinal infection [Unknown]
  - Infected fistula [Not Recovered/Not Resolved]
  - Anal fistula [Not Recovered/Not Resolved]
